FAERS Safety Report 8394684-3 (Version None)
Quarter: 2012Q2

REPORT INFORMATION
  Report Type: 
  Country: None (occurrence: None)
  Receive Date: 20120529
  Receipt Date: 20120529
  Transmission Date: 20120825
  Serious: Yes (Other)
  Sender: FDA-Public Use
  Company Number: None

PATIENT
  Age: 74 Year
  Sex: Female
  Weight: 54.4316 kg

DRUGS (1)
  1. NITROFURANTOIN [Suspect]
     Indication: URINARY TRACT INFECTION
     Dosage: 1 TWICE DAY 10 DAYS THEN 1-10
     Dates: start: 20120430, end: 20120510

REACTIONS (6)
  - VOMITING [None]
  - BURNING SENSATION [None]
  - DIARRHOEA [None]
  - NAUSEA [None]
  - SENSATION OF HEAVINESS [None]
  - PAIN [None]
